FAERS Safety Report 4363636-2 (Version None)
Quarter: 2004Q2

REPORT INFORMATION
  Report Type: 
  Country: None (occurrence: None)
  Receive Date: 20040524
  Receipt Date: 20040513
  Transmission Date: 20050107
  Serious: Yes (Other)
  Sender: FDA-Public Use
  Company Number: PHFR2004GB02103

PATIENT
  Sex: Male

DRUGS (1)
  1. GLEEVEC [Suspect]
     Route: 048

REACTIONS (2)
  - GASTRIC ANTRAL VASCULAR ECTASIA [None]
  - GASTRIC HAEMORRHAGE [None]
